FAERS Safety Report 8018306-6 (Version None)
Quarter: 2012Q1

REPORT INFORMATION
  Report Type: 
  Country: None (occurrence: None)
  Receive Date: 20120103
  Receipt Date: 20111228
  Transmission Date: 20120608
  Serious: Yes (Other)
  Sender: FDA-Public Use
  Company Number: US-JNJFOC-20111212715

PATIENT
  Age: 30 Year
  Sex: Male

DRUGS (1)
  1. FENTANYL [Suspect]
     Indication: PAIN
     Route: 062
     Dates: start: 20050101, end: 20050101

REACTIONS (6)
  - WRONG TECHNIQUE IN DRUG USAGE PROCESS [None]
  - PRODUCT QUALITY ISSUE [None]
  - SELF-MEDICATION [None]
  - EXPIRED DRUG ADMINISTERED [None]
  - ROAD TRAFFIC ACCIDENT [None]
  - BACK INJURY [None]
